FAERS Safety Report 4580524-7 (Version None)
Quarter: 2005Q1

REPORT INFORMATION
  Report Type: 
  Country: None (occurrence: None)
  Receive Date: 20050214
  Receipt Date: 20040213
  Transmission Date: 20050727
  Serious: No
  Sender: FDA-Public Use
  Company Number: US-GLAXOSMITHKLINE-A0498176A

PATIENT
  Age: 31 Year
  Sex: Female

DRUGS (4)
  1. LAMICTAL [Suspect]
     Indication: PARTIAL SEIZURES
     Dosage: 50MG TWICE PER DAY
     Route: 048
     Dates: start: 20040101
  2. KEPPRA [Concomitant]
  3. MULTI-VITAMIN [Concomitant]
  4. LEXAPRO [Concomitant]

REACTIONS (6)
  - CONFUSIONAL STATE [None]
  - DRUG INEFFECTIVE [None]
  - DYSKINESIA [None]
  - FATIGUE [None]
  - PRURITUS [None]
  - RASH [None]
